FAERS Safety Report 5278281-4 (Version None)
Quarter: 2007Q1

REPORT INFORMATION
  Report Type: 
  Country: None (occurrence: None)
  Receive Date: 20061207
  Receipt Date: 20040419
  Transmission Date: 20070707
  Serious: Yes (Other)
  Sender: FDA-Public Use
  Company Number: 2004UW07893

PATIENT
  Sex: Female

DRUGS (1)
  1. TOPROL-XL [Suspect]
     Dosage: 100 MG PO
     Route: 048

REACTIONS (2)
  - MEDICATION ERROR [None]
  - SOMNOLENCE [None]
